FAERS Safety Report 24791618 (Version 1)
Quarter: 2024Q4

REPORT INFORMATION
  Report Type: Spontaneous
  Country: JP (occurrence: JP)
  Receive Date: 20241231
  Receipt Date: 20241231
  Transmission Date: 20250115
  Serious: Yes (Other)
  Sender: JOHNSON AND JOHNSON
  Company Number: JP-JNJFOC-20241151112

PATIENT
  Age: 54 Year
  Sex: Male
  Weight: 55 kg

DRUGS (5)
  1. STELARA [Suspect]
     Active Substance: USTEKINUMAB
     Indication: Colitis ulcerative
     Route: 058
  2. IMURAN [Concomitant]
     Active Substance: AZATHIOPRINE
     Indication: Product used for unknown indication
     Route: 048
     Dates: start: 20190720
  3. NIVOLUMAB [Concomitant]
     Active Substance: NIVOLUMAB
     Indication: Product used for unknown indication
     Route: 041
     Dates: start: 20240705, end: 20241111
  4. OXALIPLATIN [Concomitant]
     Active Substance: OXALIPLATIN
     Indication: Product used for unknown indication
     Route: 041
     Dates: start: 20240705, end: 20241111
  5. TS-1 [Concomitant]
     Active Substance: GIMERACIL\OTERACIL POTASSIUM\TEGAFUR
     Indication: Product used for unknown indication
     Dosage: 2 WEEKS ON, 1 WEEK OFF
     Route: 048
     Dates: start: 20240705

REACTIONS (1)
  - Gastric cancer recurrent [Not Recovered/Not Resolved]

NARRATIVE: CASE EVENT DATE: 20240528
